FAERS Safety Report 7137697-1 (Version None)
Quarter: 2010Q4

REPORT INFORMATION
  Report Type: 
  Country: None (occurrence: None)
  Receive Date: 20101103
  Receipt Date: 20100914
  Transmission Date: 20110411
  Serious: Yes (Other)
  Sender: FDA-Public Use
  Company Number: 2010S1001000

PATIENT
  Age: 85 Year
  Sex: Male
  Weight: 71 kg

DRUGS (11)
  1. DAPTOMYCIN [Suspect]
     Indication: SKIN INFECTION
     Dosage: 4 MG/KG; IV
     Route: 042
     Dates: start: 20100708
  2. CARDIKET [Concomitant]
  3. THROMBO AS [Concomitant]
  4. ENALAPRIL MALEATE [Concomitant]
  5. TRIMETAZIDINE [Concomitant]
  6. BENDAZOL [Concomitant]
  7. PAPAVERIN [Concomitant]
  8. ACTRAPID HUMAN [Concomitant]
  9. POTASSIUM CHLORIDE [Concomitant]
  10. MAGNESIUM SULFATE [Concomitant]
  11. RYBARVIN [Concomitant]

REACTIONS (1)
  - BLOOD CREATINE PHOSPHOKINASE INCREASED [None]
